FAERS Safety Report 7369748-3 (Version None)
Quarter: 2011Q1

REPORT INFORMATION
  Report Type: 
  Country: None (occurrence: None)
  Receive Date: 20110323
  Receipt Date: 20110314
  Transmission Date: 20110831
  Serious: Yes (Life-Threatening, Hospitalization, Disabling)
  Sender: FDA-Public Use
  Company Number: US-JNJFOC-20100706406

PATIENT
  Sex: Male
  Weight: 15 kg

DRUGS (6)
  1. CHILDREN'S TYLENOL SUSPENSION [Suspect]
     Indication: PYREXIA
     Route: 048
  2. CHILDREN'S MOTRIN [Suspect]
     Route: 048
  3. CHILDREN'S TYLENOL SUSPENSION [Suspect]
     Route: 048
  4. AZITHROMYCIN [Concomitant]
  5. CHILDREN'S MOTRIN [Suspect]
     Indication: PYREXIA
     Route: 048
  6. ACYCLOVIR [Concomitant]

REACTIONS (1)
  - TOXIC EPIDERMAL NECROLYSIS [None]
